FAERS Safety Report 8603201-1 (Version None)
Quarter: 2012Q3

REPORT INFORMATION
  Report Type: 
  Country: None (occurrence: None)
  Receive Date: 20120817
  Receipt Date: 20120810
  Transmission Date: 20120928
  Serious: Yes (Other)
  Sender: FDA-Public Use
  Company Number: US-ROCHE-791150

PATIENT
  Sex: Female
  Weight: 40.406 kg

DRUGS (2)
  1. ACCUTANE [Suspect]
     Indication: ACNE
     Route: 065
     Dates: start: 19920801, end: 19930101
  2. ACCUTANE [Suspect]
     Route: 065
     Dates: start: 19940301, end: 20040501

REACTIONS (5)
  - BIPOLAR DISORDER [None]
  - COLITIS ULCERATIVE [None]
  - STRESS [None]
  - DEPRESSION [None]
  - INFLAMMATORY BOWEL DISEASE [None]
